FAERS Safety Report 15486689 (Version 1)
Quarter: 2018Q4

REPORT INFORMATION
  Report Type: Spontaneous
  Country: FR (occurrence: FR)
  Receive Date: 20181011
  Receipt Date: 20181011
  Transmission Date: 20190205
  Serious: Yes (Life-Threatening, Other)
  Sender: FDA-Public Use
  Company Number: FR-AUROBINDO-AUR-APL-2018-049922

PATIENT
  Age: 26 Year
  Sex: Female
  Weight: 97 kg

DRUGS (13)
  1. FLUDARABINE [Suspect]
     Active Substance: FLUDARABINE PHOSPHATE
     Indication: STEM CELL TRANSPLANT
     Dosage: 40 MILLIGRAM/SQ. METER, ONCE A DAY
     Route: 042
     Dates: start: 20180526, end: 20180529
  2. BUSILVEX [Suspect]
     Active Substance: BUSULFAN
     Indication: STEM CELL TRANSPLANT
     Dosage: 3.2 MILLIGRAM/KILOGRAM, ONCE A DAY
     Route: 042
     Dates: start: 20180526, end: 20180528
  3. AMIKACINE                          /00391001/ [Suspect]
     Active Substance: AMIKACIN
     Indication: PYREXIA
     Dosage: 1.5 GRAM, 24 HOUR
     Route: 042
     Dates: start: 20180601, end: 20180603
  4. DELURSAN [Suspect]
     Active Substance: URSODIOL
     Indication: DRUG TOXICITY PROPHYLAXIS
     Dosage: 3 DOSAGE FORM, ONCE A DAY
     Route: 048
     Dates: start: 201805, end: 201806
  5. ROCEPHINE [Suspect]
     Active Substance: CEFTRIAXONE SODIUM
     Indication: PYREXIA
     Dosage: 1 DOSAGE FORM, 24 HOURS
     Route: 042
     Dates: start: 20180601, end: 20180603
  6. TRIFLUCAN [Suspect]
     Active Substance: FLUCONAZOLE
     Indication: PYREXIA
     Dosage: 200 MILLIGRAM, 24 HOUR
     Route: 042
     Dates: start: 201806, end: 201806
  7. THIOTEPA. [Suspect]
     Active Substance: THIOTEPA
     Indication: STEM CELL TRANSPLANT
     Dosage: 5 MILLIGRAM/KILOGRAM, ONCE A DAY
     Route: 042
     Dates: start: 20180524, end: 20180525
  8. CICLOSPORINE [Suspect]
     Active Substance: CYCLOSPORINE
     Indication: PROPHYLAXIS AGAINST TRANSPLANT REJECTION
     Dosage: 3 MILLIGRAM/KILOGRAM, ONCE A DAY
     Route: 042
     Dates: start: 20180605, end: 20180614
  9. ENDOXAN                            /00021101/ [Suspect]
     Active Substance: CYCLOPHOSPHAMIDE
     Indication: PROPHYLAXIS AGAINST TRANSPLANT REJECTION
     Dosage: 50 MILLIGRAM/KILOGRAM, ONCE A DAY
     Route: 042
     Dates: start: 20180603, end: 20180604
  10. VANCOMYCINE                        /00314401/ [Suspect]
     Active Substance: VANCOMYCIN
     Indication: PYREXIA
     Dosage: 2.5 GRAM, 24 HOUR
     Route: 042
     Dates: start: 201806, end: 201806
  11. CELLCEPT [Suspect]
     Active Substance: MYCOPHENOLATE MOFETIL\MYCOPHENOLATE MOFETIL HYDROCHLORIDE
     Indication: PROPHYLAXIS AGAINST TRANSPLANT REJECTION
     Dosage: 45 MILLIGRAM/KILOGRAM, ONCE A DAY
     Route: 042
     Dates: start: 20180605, end: 201807
  12. ACICLOVIR [Suspect]
     Active Substance: ACYCLOVIR
     Indication: PYREXIA
     Dosage: 750 MILLIGRAM, ONCE A DAY
     Route: 042
     Dates: start: 201806, end: 201806
  13. FORTUM                             /00559701/ [Suspect]
     Active Substance: CEFTAZIDIME
     Indication: PYREXIA
     Dosage: 6 GRAM, 24 HOUR
     Route: 042
     Dates: start: 201806, end: 201806

REACTIONS (2)
  - Myocarditis [Recovering/Resolving]
  - Cardiac tamponade [Recovered/Resolved]

NARRATIVE: CASE EVENT DATE: 20180609
